FAERS Safety Report 5045905-6 (Version None)
Quarter: 2006Q2

REPORT INFORMATION
  Report Type: 
  Country: None (occurrence: None)
  Receive Date: 20060629
  Receipt Date: 20060616
  Transmission Date: 20061013
  Serious: Yes (Death, Other)
  Sender: FDA-Public Use
  Company Number: 2006047380

PATIENT
  Age: 73 Year
  Sex: Male

DRUGS (7)
  1. VFEND [Suspect]
     Indication: ILL-DEFINED DISORDER
     Dosage: SEE IMAGE
     Dates: start: 20060329
  2. TAMSULOSIN HCL [Concomitant]
  3. UBRETID (DISTIGMINE BROMIDE) [Concomitant]
  4. BESACOLIN (BETHANECHOL CHLORIDE) [Concomitant]
  5. LANIRAPID (METILDIGOXIN) [Concomitant]
  6. MEXITIL [Concomitant]
  7. PURSENNID (SENNA LEAF) [Concomitant]

REACTIONS (7)
  - ABNORMAL BEHAVIOUR [None]
  - ACCOMMODATION DISORDER [None]
  - CONDITION AGGRAVATED [None]
  - DELUSION [None]
  - HALLUCINATION, VISUAL [None]
  - INSOMNIA [None]
  - VISUAL DISTURBANCE [None]
